FAERS Safety Report 25113155 (Version 1)
Quarter: 2025Q1

REPORT INFORMATION
  Report Type: Report from Study
  Country: US (occurrence: US)
  Receive Date: 20250324
  Receipt Date: 20250324
  Transmission Date: 20250409
  Serious: Yes (Hospitalization)
  Sender: EMD SERONO INC
  Company Number: US-Merck Healthcare KGaA-2025009463

PATIENT
  Age: 56 Year
  Sex: Female

DRUGS (2)
  1. MAVENCLAD [Suspect]
     Active Substance: CLADRIBINE
     Indication: Multiple sclerosis
  2. MAVENCLAD [Suspect]
     Active Substance: CLADRIBINE

REACTIONS (9)
  - Influenza [Unknown]
  - Urinary tract infection [Unknown]
  - Sepsis [Unknown]
  - Hypotension [Unknown]
  - Escherichia infection [Unknown]
  - Asthenia [Unknown]
  - Lethargy [Unknown]
  - Syncope [Unknown]
  - Feeling abnormal [Unknown]

NARRATIVE: CASE EVENT DATE: 20250125
